FAERS Safety Report 4383925-5 (Version None)
Quarter: 2004Q2

REPORT INFORMATION
  Report Type: 
  Country: None (occurrence: None)
  Receive Date: 20040623
  Receipt Date: 20040623
  Transmission Date: 20050107
  Serious: Yes (Hospitalization)
  Sender: FDA-Public Use
  Company Number: None

PATIENT
  Age: 50 Year
  Sex: Male
  Weight: 69.8 kg

DRUGS (5)
  1. PHENYTOIN 100 MG SA CAPSULE [Suspect]
     Indication: CONVULSION
     Dosage: 300 MG QHS PO
     Route: 048
     Dates: start: 20030801, end: 20031201
  2. GABAPENTIN [Concomitant]
  3. PERCOCET [Concomitant]
  4. TYLENOL W/ CODEINE NO. 3 [Concomitant]
  5. NAPROXEN [Concomitant]

REACTIONS (5)
  - ALCOHOL USE [None]
  - ATAXIA [None]
  - DIZZINESS [None]
  - DRUG LEVEL ABOVE THERAPEUTIC [None]
  - NYSTAGMUS [None]
